APPROVED DRUG PRODUCT: TERAZOSIN HYDROCHLORIDE
Active Ingredient: TERAZOSIN HYDROCHLORIDE
Strength: EQ 10MG BASE
Dosage Form/Route: CAPSULE;ORAL
Application: A075498 | Product #004
Applicant: HIKMA PHARMACEUTICALS USA INC
Approved: Apr 12, 2001 | RLD: No | RS: No | Type: DISCN